FAERS Safety Report 4302993-X (Version None)
Quarter: 2004Q1

REPORT INFORMATION
  Report Type: 
  Country: None (occurrence: None)
  Receive Date: 20040223
  Receipt Date: 20040223
  Transmission Date: 20041129
  Serious: No
  Sender: FDA-Public Use
  Company Number: None

PATIENT
  Age: 3 Month
  Sex: Male
  Weight: 6.8 kg

DRUGS (2)
  1. IBUPROFEN 200 MG TARGET CORPORATION [Suspect]
     Indication: ARTHRALGIA
     Dosage: 200 MG 1-2 QID PR ORAL
     Route: 048
     Dates: start: 20040114, end: 20040122
  2. SYNTHROID [Concomitant]

REACTIONS (6)
  - ANORECTAL DISORDER [None]
  - COLITIS [None]
  - DERMATITIS DIAPER [None]
  - DRUG EXPOSURE VIA BREAST MILK [None]
  - FLATULENCE [None]
  - HAEMATOCHEZIA [None]
